FAERS Safety Report 8788879 (Version 1)
Quarter: 2012Q4

REPORT INFORMATION
  Report Type: 
  Country: US (occurrence: US)
  Receive Date: 20120917
  Receipt Date: 20120917
  Transmission Date: 20130627
  Serious: No
  Sender: FDA-Public Use
  Company Number: US-PFIZER INC-2012228487

PATIENT
  Age: 60 Year
  Sex: Male
  Weight: 92.97 kg

DRUGS (4)
  1. ATORVASTATIN CALCIUM [Suspect]
     Indication: BLOOD CHOLESTEROL INCREASED
     Dosage: 80 mg, 1x/day
     Route: 048
     Dates: start: 20120712, end: 20120716
  2. KOMBIGLYZE XR [Concomitant]
     Indication: DIABETES MELLITUS
     Dosage: UNK
  3. BENICAR HCT [Concomitant]
     Indication: HYPERTENSION
     Dosage: UNK
  4. PLAVIX [Concomitant]
     Indication: CARDIAC DISORDER
     Dosage: UNK

REACTIONS (2)
  - Back pain [Unknown]
  - Renal pain [Unknown]
